FAERS Safety Report 26132360 (Version 1)
Quarter: 2025Q4

REPORT INFORMATION
  Report Type: Spontaneous
  Country: US (occurrence: US)
  Receive Date: 20251208
  Receipt Date: 20251208
  Transmission Date: 20260117
  Serious: No
  Sender: VERTEX
  Company Number: US-VERTEX PHARMACEUTICALS-2025-020544

PATIENT
  Age: 25 Year
  Sex: Female

DRUGS (1)
  1. ALYFTREK [Suspect]
     Active Substance: DEUTIVACAFTOR\TEZACAFTOR\VANZACAFTOR
     Indication: Cystic fibrosis
     Dosage: VANZACAFTOR/TEZACAFTOR/DEUTIVACAFTOR

REACTIONS (4)
  - Pulmonary function test decreased [Unknown]
  - Weight gain poor [Not Recovered/Not Resolved]
  - Illness [Unknown]
  - Lung disorder [Unknown]

NARRATIVE: CASE EVENT DATE: 20251101
